FAERS Safety Report 6794801-2 (Version None)
Quarter: 2010Q2

REPORT INFORMATION
  Report Type: 
  Country: None (occurrence: None)
  Receive Date: 20100625
  Receipt Date: 20100622
  Transmission Date: 20101027
  Serious: Yes (Hospitalization)
  Sender: FDA-Public Use
  Company Number: ZA-SANOFI-AVENTIS-2009SA001803

PATIENT
  Sex: Male
  Weight: 3.41 kg

DRUGS (4)
  1. LANTUS [Suspect]
     Indication: TYPE 1 DIABETES MELLITUS
     Route: 064
     Dates: start: 20071101
  2. SOLOSTAR [Suspect]
     Indication: TYPE 1 DIABETES MELLITUS
     Dates: start: 20071101
  3. APIDRA SOLOSTAR [Suspect]
     Indication: TYPE 1 DIABETES MELLITUS
     Route: 064
     Dates: start: 20071101
  4. SOLOSTAR [Suspect]
     Dates: start: 20071101

REACTIONS (2)
  - DRUG EXPOSURE DURING PREGNANCY [None]
  - HOSPITALISATION [None]
